FAERS Safety Report 7553032-9 (Version None)
Quarter: 2011Q2

REPORT INFORMATION
  Report Type: 
  Country: None (occurrence: None)
  Receive Date: 20110616
  Receipt Date: 20110601
  Transmission Date: 20111010
  Serious: Yes (Other)
  Sender: FDA-Public Use
  Company Number: US-BAYER-2011-047641

PATIENT
  Age: 46 Year
  Sex: Male
  Weight: 136 kg

DRUGS (2)
  1. INSULIN [Concomitant]
  2. ALKA-SELTZER ORIGINAL [Suspect]
     Indication: ABDOMINAL DISCOMFORT
     Dosage: DAILY DOSE 16 DF
     Route: 048

REACTIONS (3)
  - SOMNOLENCE [None]
  - WEIGHT INCREASED [None]
  - DRUG DEPENDENCE [None]
